FAERS Safety Report 5389855-4 (Version None)
Quarter: 2007Q3

REPORT INFORMATION
  Report Type: 
  Country: None (occurrence: None)
  Receive Date: 20070718
  Receipt Date: 20070709
  Transmission Date: 20080115
  Serious: Yes (Hospitalization)
  Sender: FDA-Public Use
  Company Number: PHMT2007CA01478

PATIENT
  Age: 61 Year
  Sex: Female
  Weight: 82 kg

DRUGS (7)
  1. FEMARA [Suspect]
     Indication: BREAST CANCER
     Dosage: 2.5 MG, QD
     Route: 048
     Dates: start: 20050621
  2. ACCUPRIL [Concomitant]
  3. HYDROCHLOROTHIAZIDE [Concomitant]
  4. LIPITOR [Concomitant]
     Dosage: 40 MG, QD
  5. ASPIRIN [Concomitant]
     Dosage: 80 MG, QD
  6. CYCLOPHOSPHAMIDE [Concomitant]
     Dosage: EVERY 4 WEEKS
  7. PREDNISONE [Concomitant]
     Dosage: 50 MG A DAY

REACTIONS (3)
  - GLOMERULONEPHRITIS RAPIDLY PROGRESSIVE [None]
  - MALAISE [None]
  - RENAL FAILURE [None]
